FAERS Safety Report 17202785 (Version 1)
Quarter: 2019Q4

REPORT INFORMATION
  Report Type: Spontaneous
  Country: US (occurrence: US)
  Receive Date: 20191204
  Receipt Date: 20191204
  Transmission Date: 20200122
  Serious: No
  Sender: FDA-Public Use
  Company Number: None

PATIENT
  Age: 18 Year
  Sex: Female

DRUGS (1)
  1. SIROLUMUS TAB 0.5MG [Suspect]
     Active Substance: SIROLIMUS
     Route: 048
     Dates: start: 20170712

REACTIONS (3)
  - Product prescribing issue [None]
  - Product availability issue [None]
  - Therapy cessation [None]

NARRATIVE: CASE EVENT DATE: 20191204
